FAERS Safety Report 10787816 (Version 1)
Quarter: 2015Q1

REPORT INFORMATION
  Report Type: Spontaneous
  Country: JP (occurrence: JP)
  Receive Date: 20150212
  Receipt Date: 20150212
  Transmission Date: 20150721
  Serious: Yes (Other)
  Sender: FDA-Public Use
  Company Number: JP-TEVA-540365ISR

PATIENT
  Age: 70 Year
  Sex: Male

DRUGS (3)
  1. LENTINAN [Suspect]
     Active Substance: LENTINAN
     Indication: GASTRIC CANCER STAGE IV
     Dosage: 2 MG\WEEK
  2. TS-1 [Suspect]
     Active Substance: GIMERACIL\OTERACIL\TEGAFUR
     Indication: GASTRIC CANCER STAGE IV
     Dosage: 120 MILLIGRAM DAILY;
  3. CISPLATIN. [Suspect]
     Active Substance: CISPLATIN
     Indication: GASTRIC CANCER STAGE IV
     Dosage: 20 MG\WEEK

REACTIONS (1)
  - Gastric perforation [Unknown]
